FAERS Safety Report 21660335 (Version 1)
Quarter: 2022Q4

REPORT INFORMATION
  Report Type: Spontaneous
  Country: JP (occurrence: JP)
  Receive Date: 20221130
  Receipt Date: 20221130
  Transmission Date: 20230113
  Serious: Yes (Other)
  Sender: FDA-Public Use
  Company Number: JP-SUN PHARMACEUTICAL INDUSTRIES LTD-2022R1-366232

PATIENT
  Age: 9 Decade
  Sex: Male
  Weight: 62 kg

DRUGS (3)
  1. CARBOPLATIN [Suspect]
     Active Substance: CARBOPLATIN
     Indication: Neuroendocrine carcinoma
     Dosage: AUC OF 5 ON DAY 1, 6 COURSES
     Route: 065
  2. ETOPOSIDE [Suspect]
     Active Substance: ETOPOSIDE
     Indication: Neuroendocrine carcinoma
     Dosage: 80 MILLIGRAM/SQ. METER, ON DAYS 1 TO 3, 6 COURSES
     Route: 065
  3. PEGFILGRASTIM [Concomitant]
     Active Substance: PEGFILGRASTIM
     Indication: Neutropenia
     Dosage: UNK, ON DAY 4
     Route: 065

REACTIONS (2)
  - Renal impairment [Unknown]
  - Nausea [Recovered/Resolved]
